FAERS Safety Report 5581288-0 (Version None)
Quarter: 2008Q1

REPORT INFORMATION
  Report Type: 
  Country: None (occurrence: None)
  Receive Date: 20080104
  Receipt Date: 20071226
  Transmission Date: 20080703
  Serious: Yes (Other)
  Sender: FDA-Public Use
  Company Number: BR-JNJFOC-20071206134

PATIENT
  Age: 37 Year
  Sex: Male
  Weight: 72 kg

DRUGS (4)
  1. ACETAMINOPHEN W/ CODEINE [Suspect]
     Indication: ANALGESIA
     Dosage: 500 MG AND 7.5 MG RESPECTIVELY
     Route: 048
  2. CODEINE [Concomitant]
     Indication: ANALGESIA
     Route: 048
  3. RIVOTRIL [Concomitant]
     Indication: DEPRESSION
     Route: 065
  4. AMYTRIL [Concomitant]
     Indication: DEPRESSION
     Route: 065

REACTIONS (1)
  - HAEMORRHAGE [None]
